FAERS Safety Report 16311389 (Version 1)
Quarter: 2019Q2

REPORT INFORMATION
  Report Type: Spontaneous
  Country: US (occurrence: US)
  Receive Date: 20190514
  Receipt Date: 20190514
  Transmission Date: 20190711
  Serious: No
  Sender: FDA-Public Use
  Company Number: US-AKRON, INC.-2066985

PATIENT
  Age: 93 Year
  Sex: Male

DRUGS (1)
  1. BETIMOL [Suspect]
     Active Substance: TIMOLOL
     Route: 047

REACTIONS (3)
  - Ocular hyperaemia [Unknown]
  - Eye pruritus [Unknown]
  - Eye irritation [Unknown]
